FAERS Safety Report 15122379 (Version 1)
Quarter: 2018Q3

REPORT INFORMATION
  Report Type: Report from Study
  Country: RU (occurrence: RU)
  Receive Date: 20180709
  Receipt Date: 20180709
  Transmission Date: 20181010
  Serious: Yes (Hospitalization, Other)
  Sender: FDA-Public Use
  Company Number: RU-BRISTOL-MYERS SQUIBB COMPANY-BMS-2018-062043

PATIENT
  Age: 24 Year
  Sex: Female

DRUGS (1)
  1. NIVOLUMAB [Suspect]
     Active Substance: NIVOLUMAB
     Indication: HODGKIN^S DISEASE
     Dosage: 3 MG/KG, Q2WK
     Route: 065
     Dates: start: 20161109

REACTIONS (5)
  - Device dislocation [Unknown]
  - Arthralgia [Unknown]
  - Arthritis infective [Recovering/Resolving]
  - Deep vein thrombosis [Unknown]
  - Oedema [Unknown]

NARRATIVE: CASE EVENT DATE: 20170208
